FAERS Safety Report 7479348-2 (Version None)
Quarter: 2011Q2

REPORT INFORMATION
  Report Type: 
  Country: None (occurrence: None)
  Receive Date: 20110513
  Receipt Date: 20110504
  Transmission Date: 20111010
  Serious: Yes (Other)
  Sender: FDA-Public Use
  Company Number: US-ASTRAZENECA-2011SE15238

PATIENT
  Age: 68 Year
  Sex: Female

DRUGS (2)
  1. PULMICORT FLEXHALER [Suspect]
     Route: 055
  2. OXYGEN [Concomitant]

REACTIONS (2)
  - OXYGEN SUPPLEMENTATION [None]
  - ARTHRITIS [None]
